FAERS Safety Report 23786654 (Version 1)
Quarter: 2024Q2

REPORT INFORMATION
  Report Type: Spontaneous
  Country: SE (occurrence: SE)
  Receive Date: 20240426
  Receipt Date: 20240426
  Transmission Date: 20240715
  Serious: Yes (Other)
  Sender: FDA-Public Use
  Company Number: None

PATIENT

DRUGS (3)
  1. LAMOTRIGINE [Suspect]
     Active Substance: LAMOTRIGINE
     Indication: Bipolar II disorder
     Dosage: UNK (STARTED TREATMENT WITH LAMOTRIGINE IN ESCALATION)
     Route: 065
     Dates: start: 202311
  2. Aritonin [Concomitant]
     Indication: Product used for unknown indication
     Dosage: UNK (1 TABLET AT 19:00 AND 1 TABLET AT 21:00/AS NECESSARY)
     Route: 065
     Dates: start: 20240103
  3. INNOVAIR [Concomitant]
     Active Substance: BECLOMETHASONE DIPROPIONATE\FORMOTEROL
     Indication: Product used for unknown indication
     Dosage: UNK UNK, BID (1-2 INHALATIONS 2 TIMES DAILY)
     Route: 065
     Dates: start: 20230921

REACTIONS (10)
  - Alopecia [Recovering/Resolving]
  - Memory impairment [Recovering/Resolving]
  - Ataxia [Recovering/Resolving]
  - Anxiety [Unknown]
  - Feeling of despair [Unknown]
  - Palpitations [Recovering/Resolving]
  - Tremor [Unknown]
  - Depressed mood [Unknown]
  - Panic attack [Unknown]
  - Irritability [Unknown]
